FAERS Safety Report 9459168 (Version 1)
Quarter: 2013Q3

REPORT INFORMATION
  Report Type: Spontaneous
  Country: SG (occurrence: SG)
  Receive Date: 20130814
  Receipt Date: 20130814
  Transmission Date: 20140515
  Serious: Yes (Other)
  Sender: FDA-Public Use
  Company Number: SG-PFIZER INC-2013230003

PATIENT
  Age: 52 Year
  Sex: Male

DRUGS (1)
  1. GLIPIZIDE [Suspect]
     Dosage: UNK

REACTIONS (3)
  - Hypoglycaemia [Unknown]
  - Hyperhidrosis [Unknown]
  - Glycosylated haemoglobin increased [Unknown]
